FAERS Safety Report 24900414 (Version 1)
Quarter: 2025Q1

REPORT INFORMATION
  Report Type: Spontaneous
  Country: US (occurrence: US)
  Receive Date: 20250129
  Receipt Date: 20250129
  Transmission Date: 20250409
  Serious: No
  Sender: PERRIGO
  Company Number: US-PERRIGO-24US001851

PATIENT
  Age: 43 Year
  Sex: Male

DRUGS (1)
  1. IBUPROFEN AND DIPHENHYDRAMINE CITRATE [Suspect]
     Active Substance: DIPHENHYDRAMINE CITRATE\IBUPROFEN
     Indication: Pain in extremity
     Route: 048
     Dates: start: 20240219

REACTIONS (3)
  - Product name confusion [Unknown]
  - Wrong product administered [Unknown]
  - Overdose [Unknown]

NARRATIVE: CASE EVENT DATE: 20240219
